FAERS Safety Report 17039149 (Version 3)
Quarter: 2020Q1

REPORT INFORMATION
  Report Type: Spontaneous
  Country: US (occurrence: US)
  Receive Date: 20191115
  Receipt Date: 20200210
  Transmission Date: 20200409
  Serious: Yes (Hospitalization)
  Sender: FDA-Public Use
  Company Number: US-SA-2019SA310685

PATIENT
  Age: 50 Year
  Sex: Male

DRUGS (2)
  1. DUPIXENT [Suspect]
     Active Substance: DUPILUMAB
     Indication: DERMATITIS ATOPIC
     Dosage: 300 MG, QOW
     Route: 058
     Dates: start: 20191003, end: 202001
  2. DUPIXENT [Suspect]
     Active Substance: DUPILUMAB
     Indication: ASTHMA

REACTIONS (7)
  - Pyrexia [Recovering/Resolving]
  - Nausea [Recovered/Resolved]
  - Pleural effusion [Recovering/Resolving]
  - Asthma [Recovering/Resolving]
  - Influenza [Recovering/Resolving]
  - Oral papule [Recovered/Resolved]
  - Mass [Unknown]

NARRATIVE: CASE EVENT DATE: 201910
